FAERS Safety Report 18905039 (Version 1)
Quarter: 2021Q1

REPORT INFORMATION
  Report Type: Spontaneous
  Country: US (occurrence: US)
  Receive Date: 20210217
  Receipt Date: 20210217
  Transmission Date: 20210420
  Serious: No
  Sender: FDA-Public Use
  Company Number: US-BAYER-2021-068384

PATIENT

DRUGS (1)
  1. CLARITIN [Suspect]
     Active Substance: LORATADINE
     Indication: COUGH
     Route: 048

REACTIONS (3)
  - Product container seal issue [Unknown]
  - Product use in unapproved indication [Unknown]
  - Product leakage [Unknown]
